FAERS Safety Report 23292078 (Version 1)
Quarter: 2023Q4

REPORT INFORMATION
  Report Type: Spontaneous
  Country: AR (occurrence: AR)
  Receive Date: 20231213
  Receipt Date: 20231213
  Transmission Date: 20240110
  Serious: No
  Sender: FDA-Public Use
  Company Number: AR-PFIZER INC-PV202300189248

PATIENT
  Age: 11 Year
  Sex: Male

DRUGS (1)
  1. GENOTROPIN [Suspect]
     Active Substance: SOMATROPIN
     Indication: Short stature
     Dosage: 1.5 TO 2MG, 7 TIMES PER WEEK
     Dates: start: 20190125

REACTIONS (4)
  - Device malfunction [Not Recovered/Not Resolved]
  - Device mechanical issue [Unknown]
  - Device difficult to use [Not Recovered/Not Resolved]
  - Drug dose omission by device [Not Recovered/Not Resolved]

NARRATIVE: CASE EVENT DATE: 20231117
